FAERS Safety Report 6597702-8 (Version None)
Quarter: 2010Q1

REPORT INFORMATION
  Report Type: 
  Country: None (occurrence: None)
  Receive Date: 20100216
  Receipt Date: 20100204
  Transmission Date: 20100710
  Serious: Yes (Hospitalization)
  Sender: FDA-Public Use
  Company Number: 2010AL000755

PATIENT
  Age: 7 Year
  Sex: Male

DRUGS (3)
  1. PHENYTOIN [Suspect]
  2. CEFTRIAXONE (ROCEPHIN) [Concomitant]
  3. IMIPENEM [Concomitant]

REACTIONS (6)
  - ANAEMIA [None]
  - DRUG HYPERSENSITIVITY [None]
  - DRUG RASH WITH EOSINOPHILIA AND SYSTEMIC SYMPTOMS [None]
  - LEUKOPENIA [None]
  - RESPIRATORY DISTRESS [None]
  - THROMBOCYTOPENIA [None]
